FAERS Safety Report 25922296 (Version 1)
Quarter: 2025Q4

REPORT INFORMATION
  Report Type: Spontaneous
  Country: EU (occurrence: EU)
  Receive Date: 20251015
  Receipt Date: 20251015
  Transmission Date: 20260117
  Serious: Yes (Other)
  Sender: SANDOZ
  Company Number: EU-SANDOZ-SDZ2025SI069513

PATIENT
  Sex: Male

DRUGS (7)
  1. LEUPROLIDE ACETATE [Suspect]
     Active Substance: LEUPROLIDE ACETATE
     Indication: Prostate cancer
     Dosage: 5 MG IMPLANT IN PRE- FILLED INJECTION SYRINGE,A SINGLE DOSE OF LEPTOPTOL 5 MG ONCE EVERY 3 MONTHS
     Route: 058
     Dates: start: 20220113
  2. CALCIUM CARBONATE [Concomitant]
     Active Substance: CALCIUM CARBONATE
     Indication: Product used for unknown indication
     Dosage: KRKA 1 G TBL 50X
     Route: 065
  3. HUMALOG [Concomitant]
     Active Substance: INSULIN LISPRO
     Dosage: MIX25 100 UNITS/ML KWIKPEN SUSPENSION FOR INJECTION PEN 5X
     Route: 065
  4. HUMALOG [Concomitant]
     Active Substance: INSULIN LISPRO
     Indication: Product used for unknown indication
     Dosage: MIX50 100 UNITS/ML KWIKPEN SUSPENSION FOR INJECTION PEN 5X
     Route: 065
  5. CHOLECALCIFEROL [Concomitant]
     Active Substance: CHOLECALCIFEROL
     Indication: Product used for unknown indication
     Dosage: 4000 IU/ML,ORAL DROPS SOLUTION 10 ML IU/ML
     Route: 065
  6. EZETIMIBE\ROSUVASTATIN CALCIUM [Concomitant]
     Active Substance: EZETIMIBE\ROSUVASTATIN CALCIUM
     Indication: Product used for unknown indication
     Dosage: 20 MG/10 MG FILM-COATED TABLETS 90X
     Route: 065
  7. XTANDI [Concomitant]
     Active Substance: ENZALUTAMIDE
     Indication: Product used for unknown indication
     Dosage: 40 MG,FILM-COATED TABLETS 112X
     Route: 065

REACTIONS (1)
  - Circumstance or information capable of leading to medication error [Unknown]
